FAERS Safety Report 12937335 (Version 3)
Quarter: 2017Q1

REPORT INFORMATION
  Report Type: Spontaneous
  Country: US (occurrence: US)
  Receive Date: 20161114
  Receipt Date: 20170125
  Transmission Date: 20170428
  Serious: No
  Sender: FDA-Public Use
  Company Number: US-PFIZER INC-2016527879

PATIENT
  Age: 68 Year
  Sex: Female

DRUGS (1)
  1. AROMASIN [Suspect]
     Active Substance: EXEMESTANE
     Indication: BREAST CANCER
     Dosage: 25 MG, 1X/DAY
     Dates: start: 201601

REACTIONS (4)
  - Neck pain [Recovering/Resolving]
  - Back pain [Recovering/Resolving]
  - Pain [Recovering/Resolving]
  - Musculoskeletal stiffness [Recovering/Resolving]
